FAERS Safety Report 14674981 (Version 5)
Quarter: 2019Q3

REPORT INFORMATION
  Report Type: Report from Study
  Country: CA (occurrence: CA)
  Receive Date: 20180323
  Receipt Date: 20190924
  Transmission Date: 20191004
  Serious: Yes (Other)
  Sender: FDA-Public Use
  Company Number: CA-BRISTOL-MYERS SQUIBB COMPANY-BMS-2017-049100

PATIENT
  Age: 64 Year
  Sex: Female

DRUGS (1)
  1. ABATACEPT [Suspect]
     Active Substance: ABATACEPT
     Indication: RHEUMATOID ARTHRITIS
     Dosage: 750 MG, Q4WK
     Route: 042
     Dates: start: 20100125

REACTIONS (12)
  - Pain in extremity [Not Recovered/Not Resolved]
  - Malaise [Unknown]
  - Ear discomfort [Not Recovered/Not Resolved]
  - Thyroid disorder [Unknown]
  - Nasopharyngitis [Not Recovered/Not Resolved]
  - Cough [Unknown]
  - Nasal congestion [Unknown]
  - Dizziness [Unknown]
  - Ear pain [Unknown]
  - Nausea [Unknown]
  - Loss of consciousness [Unknown]
  - Sinusitis [Recovered/Resolved]

NARRATIVE: CASE EVENT DATE: 20170422
